FAERS Safety Report 21570452 (Version 1)
Quarter: 2022Q4

REPORT INFORMATION
  Report Type: Report from Study
  Country: US (occurrence: US)
  Receive Date: 20221109
  Receipt Date: 20221109
  Transmission Date: 20230113
  Serious: No
  Sender: FDA-Public Use
  Company Number: US-ABBVIE-22K-163-4442060-00

PATIENT
  Age: 42 Year
  Sex: Female

DRUGS (35)
  1. SKYRIZI [Suspect]
     Active Substance: RISANKIZUMAB-RZAA
     Indication: Psoriatic arthropathy
     Dosage: WEEK 0
     Route: 058
  2. SKYRIZI [Suspect]
     Active Substance: RISANKIZUMAB-RZAA
     Indication: Psoriasis
     Dosage: WEEK 4
     Route: 058
  3. SKYRIZI [Suspect]
     Active Substance: RISANKIZUMAB-RZAA
     Indication: Psoriasis
     Dosage: FORM STRENGTH: 150 MILLIGRAM/MILLILITERS
     Route: 058
  4. VITAMIN K [Concomitant]
     Active Substance: PHYTONADIONE
     Indication: Product used for unknown indication
     Dosage: FORM STRENGTH: 100 MICROGRAM
  5. CABERGOLINE [Concomitant]
     Active Substance: CABERGOLINE
     Indication: Product used for unknown indication
     Dosage: FORM STRENGTH 0.5 MILLIGRAM
  6. DAYVIGO [Concomitant]
     Active Substance: LEMBOREXANT
     Indication: Product used for unknown indication
     Dosage: FORM STRENGTH 10 MILLIGRAM
  7. TYLENOL [Concomitant]
     Active Substance: ACETAMINOPHEN
     Indication: Product used for unknown indication
     Dosage: FORM STRENGTH: 325 MILLIGRAM
  8. SEYSARA [Concomitant]
     Active Substance: SARECYCLINE HYDROCHLORIDE
     Indication: Product used for unknown indication
     Dosage: STRENGTH: 100 MILLIGRAM
  9. VITAMIN C [Concomitant]
     Active Substance: ASCORBIC ACID
     Indication: Product used for unknown indication
     Dosage: FORM STRENGTH: 1000 MILLIGRAM
  10. CYANOCOBALAMIN\DEXPANTHENOL\NIACINAMIDE\PYRIDOXINE HYDROCHLORIDE\RIBOF [Concomitant]
     Active Substance: CYANOCOBALAMIN\DEXPANTHENOL\NIACINAMIDE\PYRIDOXINE HYDROCHLORIDE\RIBOFLAVIN 5^-PHOSPHATE SODIUM\THIA
     Indication: Product used for unknown indication
     Dosage: FORM STRENGTH: 400 MICROGRAM
  11. SACCHAROMYCES CEREVISIAE [Concomitant]
     Active Substance: SACCHAROMYCES CEREVISIAE
     Indication: Product used for unknown indication
  12. QUERCETIN DIHYDRATE [Concomitant]
     Active Substance: QUERCETIN DIHYDRATE
     Indication: Product used for unknown indication
     Dosage: 100 % POWDER
  13. PEPCID AC [Concomitant]
     Active Substance: FAMOTIDINE
     Indication: Product used for unknown indication
     Dosage: FORM STRENGTH 20 MILLIGRAM
  14. ZINC CITRATE [Concomitant]
     Active Substance: ZINC CITRATE
     Indication: Product used for unknown indication
     Dosage: 100 %
  15. MIRALAX [Concomitant]
     Active Substance: POLYETHYLENE GLYCOL 3350
     Indication: Product used for unknown indication
     Dosage: 17 GRAM/DOSE
  16. MELATONIN [Concomitant]
     Active Substance: MELATONIN
     Indication: Product used for unknown indication
     Dosage: FORM STRENGTH 3 MILLIGRAM
  17. MAGNESIUM MALATE [Concomitant]
     Active Substance: MAGNESIUM MALATE
     Indication: Product used for unknown indication
     Dosage: 15.2 %
  18. FISH OIL [Concomitant]
     Active Substance: FISH OIL
     Indication: Product used for unknown indication
     Dosage: 100-160 MILLIGRAM
  19. METAXALONE [Concomitant]
     Active Substance: METAXALONE
     Indication: Product used for unknown indication
     Dosage: FORM STRENGTH 800 MILLIGRAM
  20. HYSINGLA ER [Concomitant]
     Active Substance: HYDROCODONE BITARTRATE
     Indication: Product used for unknown indication
     Dosage: FORM STRENGTH 20 MILLIGRAM
  21. GABAPENTIN [Concomitant]
     Active Substance: GABAPENTIN
     Indication: Product used for unknown indication
     Dosage: FORM STRENGTH 300 MILLIGRAM
  22. DESLORATADINE [Concomitant]
     Active Substance: DESLORATADINE
     Indication: Product used for unknown indication
     Dosage: FORM STRENGTH 5 MILLIGRAM
  23. CROMOLYN SODIUM [Concomitant]
     Active Substance: CROMOLYN SODIUM
     Indication: Product used for unknown indication
     Dosage: FORM STRENGTH 20 MILLIGRAM/MILLILITERS, ORAL CONCENTRATION
     Route: 048
  24. CREON [Concomitant]
     Active Substance: PANCRELIPASE AMYLASE\PANCRELIPASE LIPASE\PANCRELIPASE PROTEASE
     Indication: Product used for unknown indication
     Dosage: 12K-38K-60 DELAYED RELEASE
  25. CELECOXIB [Concomitant]
     Active Substance: CELECOXIB
     Indication: Product used for unknown indication
     Dosage: FORM STRENGTH 200 MILLIGRAM
  26. ARMOUR THYROID [Concomitant]
     Active Substance: THYROID, PORCINE
     Indication: Product used for unknown indication
     Dosage: FORM STRENGTH: 30 MILLIGRAM
  27. METOPROLOL TARTRATE [Concomitant]
     Active Substance: METOPROLOL TARTRATE
     Indication: Product used for unknown indication
     Dosage: FORM STRENGTH 25 MILLIGRAM
  28. NORLYDA [Concomitant]
     Active Substance: NORETHINDRONE
     Indication: Product used for unknown indication
     Dosage: FORM STRENGTH 0.35 MILLIGRAM
  29. DIETARY SUPPLEMENT [Concomitant]
     Active Substance: DIETARY SUPPLEMENT
     Indication: Product used for unknown indication
     Dosage: 250-30-50 TABLET.
  30. VITAMIN D3 [Concomitant]
     Active Substance: CHOLECALCIFEROL
     Indication: Product used for unknown indication
     Dosage: FORM STRENGTH: 125 MICROGRAM
  31. COENZYME Q10 [Concomitant]
     Active Substance: DIETARY SUPPLEMENT\UBIDECARENONE
     Indication: Product used for unknown indication
     Dosage: 100 MILLIGRAM CAPSULE
  32. GABAPENTIN [Concomitant]
     Active Substance: GABAPENTIN
     Indication: Product used for unknown indication
     Dosage: FORM STRENGTH 100 MILLIGRAM
  33. PFIZER-BIONTECH COVID-19 VACCINE [Concomitant]
     Active Substance: TOZINAMERAN
     Indication: COVID-19 immunisation
     Dosage: TIME INTERVAL: TOTAL: FIRST DOSE
     Route: 030
     Dates: start: 20210325, end: 20210325
  34. PFIZER-BIONTECH COVID-19 VACCINE [Concomitant]
     Active Substance: TOZINAMERAN
     Indication: COVID-19 immunisation
     Dosage: TIME INTERVAL: TOTAL: SECOND DOSE
     Route: 030
     Dates: start: 20210407, end: 20210407
  35. PFIZER-BIONTECH COVID-19 VACCINE [Concomitant]
     Active Substance: TOZINAMERAN
     Indication: COVID-19 immunisation
     Dosage: TIME INTERVAL: TOTAL: BOOSTER DOSE
     Route: 030
     Dates: start: 20210826, end: 20210826

REACTIONS (3)
  - COVID-19 [Unknown]
  - Condition aggravated [Unknown]
  - Therapeutic response shortened [Unknown]

NARRATIVE: CASE EVENT DATE: 20220606
